FAERS Safety Report 7218255-7 (Version None)
Quarter: 2011Q1

REPORT INFORMATION
  Report Type: 
  Country: None (occurrence: None)
  Receive Date: 20110110
  Receipt Date: 20101228
  Transmission Date: 20110831
  Serious: Yes (Death, Hospitalization)
  Sender: FDA-Public Use
  Company Number: US-NOVEN-10US001482

PATIENT
  Age: 45 Year
  Sex: Male

DRUGS (3)
  1. PAROXETINE HCL [Suspect]
     Indication: PRODUCT USED FOR UNKNOWN INDICATION
  2. CITALOPRAM [Suspect]
     Indication: PRODUCT USED FOR UNKNOWN INDICATION
  3. UNKNOWN [Concomitant]

REACTIONS (12)
  - FOAMING AT MOUTH [None]
  - VITAL FUNCTIONS ABNORMAL [None]
  - ELECTROCARDIOGRAM ABNORMAL [None]
  - HYPOXIC-ISCHAEMIC ENCEPHALOPATHY [None]
  - HYPOTENSION [None]
  - UNRESPONSIVE TO STIMULI [None]
  - OVERDOSE [None]
  - MYOCARDIAL INFARCTION [None]
  - MUSCLE RIGIDITY [None]
  - EJECTION FRACTION DECREASED [None]
  - BLOOD PRESSURE SYSTOLIC INCREASED [None]
  - BRADYCARDIA [None]
